FAERS Safety Report 16119923 (Version 1)
Quarter: 2019Q1

REPORT INFORMATION
  Report Type: Spontaneous
  Country: US (occurrence: US)
  Receive Date: 20190326
  Receipt Date: 20190326
  Transmission Date: 20190418
  Serious: Yes (Hospitalization, Other)
  Sender: FDA-Public Use
  Company Number: US-GLAXOSMITHKLINE-US2019GSK051538

PATIENT
  Sex: Female

DRUGS (1)
  1. NUCALA [Suspect]
     Active Substance: MEPOLIZUMAB
     Indication: ASTHMA
     Dosage: 100 MG, CYC
     Route: 058
     Dates: start: 20160101

REACTIONS (9)
  - Bronchopulmonary aspergillosis allergic [Unknown]
  - Staphylococcal infection [Unknown]
  - Pneumonia [Unknown]
  - Lung infection [Unknown]
  - Dyspnoea [Unknown]
  - Cough [Unknown]
  - Drug effect incomplete [Unknown]
  - Wheezing [Unknown]
  - Ill-defined disorder [Unknown]
